FAERS Safety Report 4992312-8 (Version None)
Quarter: 2006Q2

REPORT INFORMATION
  Report Type: 
  Country: None (occurrence: None)
  Receive Date: 20060502
  Receipt Date: 20060417
  Transmission Date: 20061013
  Serious: Yes (Hospitalization, Disabling)
  Sender: FDA-Public Use
  Company Number: 222542

PATIENT
  Age: 43 Year
  Sex: Male
  Weight: 76.2 kg

DRUGS (3)
  1. EFALIZUMAB(EFALIZUMAB) PWDR + SOLVENT,INJECTION SOLN, 125MG [Suspect]
     Indication: PSORIASIS
     Dosage: 0.7 MG, 1/WEEK, SUBCUTANEOUS
     Route: 058
     Dates: start: 20050814, end: 20060122
  2. EFALIZUMAB(EFALIZUMAB) PWDR + SOLVENT,INJECTION SOLN, 125MG [Suspect]
     Indication: PSORIASIS
     Dosage: 0.7 MG, 1/WEEK, SUBCUTANEOUS
     Route: 058
     Dates: start: 20060219
  3. DARVOCET-N 100 (ACETAMINOPHEN, PROPOXYPHENE NAPSYLATE) [Concomitant]

REACTIONS (5)
  - CHEST X-RAY ABNORMAL [None]
  - CONFUSIONAL STATE [None]
  - DIZZINESS POSTURAL [None]
  - FALL [None]
  - GRAND MAL CONVULSION [None]
